FAERS Safety Report 4590304-4 (Version None)
Quarter: 2005Q1

REPORT INFORMATION
  Report Type: 
  Country: None (occurrence: None)
  Receive Date: 20050224
  Receipt Date: 20050214
  Transmission Date: 20050727
  Serious: Yes (Other)
  Sender: FDA-Public Use
  Company Number: PHRM2005DZ00857

PATIENT
  Age: 70 Year
  Sex: Male

DRUGS (1)
  1. COTAREG [Suspect]
     Indication: HYPERTENSION
     Route: 048

REACTIONS (3)
  - FATIGUE [None]
  - HEADACHE [None]
  - MYASTHENIC SYNDROME [None]
